FAERS Safety Report 12398991 (Version 3)
Quarter: 2016Q2

REPORT INFORMATION
  Report Type: Report from Study
  Country: US (occurrence: US)
  Receive Date: 20160524
  Receipt Date: 20160614
  Transmission Date: 20160815
  Serious: Yes (Death, Other)
  Sender: FDA-Public Use
  Company Number: US-GILEAD-2016-0191936

PATIENT
  Age: 68 Year
  Sex: Female

DRUGS (1)
  1. IDELALISIB [Suspect]
     Active Substance: IDELALISIB
     Indication: NON-HODGKIN^S LYMPHOMA
     Dosage: 150 MG, BID
     Route: 048
     Dates: start: 20150731, end: 201604

REACTIONS (7)
  - Sepsis [Fatal]
  - Malaise [Unknown]
  - Pancytopenia [Fatal]
  - White blood cell count decreased [Recovering/Resolving]
  - Sinusitis [Unknown]
  - Disease progression [Unknown]
  - Haemoglobin decreased [Unknown]

NARRATIVE: CASE EVENT DATE: 2016
